FAERS Safety Report 8513809-X (Version None)
Quarter: 2012Q3

REPORT INFORMATION
  Report Type: 
  Country: None (occurrence: None)
  Receive Date: 20120717
  Receipt Date: 20120711
  Transmission Date: 20120928
  Serious: Yes (Other)
  Sender: FDA-Public Use
  Company Number: BR-US-EMD SERONO, INC.-7134673

PATIENT
  Sex: Female

DRUGS (6)
  1. ZETIA [Concomitant]
     Indication: PRODUCT USED FOR UNKNOWN INDICATION
  2. CRESTOR [Concomitant]
     Indication: PRODUCT USED FOR UNKNOWN INDICATION
  3. TEGRETOL [Concomitant]
     Indication: PRODUCT USED FOR UNKNOWN INDICATION
  4. REBIF [Suspect]
     Indication: RELAPSING-REMITTING MULTIPLE SCLEROSIS
     Dates: start: 20120521, end: 20120704
  5. CONCOR [Concomitant]
     Indication: PRODUCT USED FOR UNKNOWN INDICATION
  6. CONCOR [Concomitant]

REACTIONS (6)
  - MOTOR DYSFUNCTION [None]
  - FACIAL PAIN [None]
  - GAMMA-GLUTAMYLTRANSFERASE INCREASED [None]
  - NASOPHARYNGITIS [None]
  - MICTURITION URGENCY [None]
  - HEADACHE [None]
